FAERS Safety Report 8257482-7 (Version None)
Quarter: 2012Q2

REPORT INFORMATION
  Report Type: 
  Country: None (occurrence: None)
  Receive Date: 20120403
  Receipt Date: 20120330
  Transmission Date: 20120825
  Serious: Yes (Death, Other)
  Sender: FDA-Public Use
  Company Number: PHHY2012CN019742

PATIENT
  Age: 76 Year
  Sex: Male

DRUGS (10)
  1. IMMUNE GLOBULIN (HUMAN) [Concomitant]
  2. IMIPENEM [Concomitant]
  3. MOXIFLOXACIN [Suspect]
     Indication: PROPHYLAXIS
     Dosage: 2 MG, PER DAY
  4. ITRACONAZOLE [Concomitant]
  5. METHYLPREDNISOLONE [Suspect]
     Dosage: 60 MG, PER DAY
  6. AMPHOTERICIN B [Concomitant]
  7. PIDOTIMOD [Concomitant]
  8. DEXAMETHASONE [Suspect]
     Route: 061
  9. METHYLPREDNISOLONE [Suspect]
     Dosage: 40 MG, PER DAY
  10. ALBUMIN (HUMAN) [Concomitant]

REACTIONS (6)
  - PULMONARY HAEMORRHAGE [None]
  - ANGINA PECTORIS [None]
  - NECROSIS [None]
  - CONDITION AGGRAVATED [None]
  - DIABETES MELLITUS [None]
  - ZYGOMYCOSIS [None]
